FAERS Safety Report 4654030-5 (Version None)
Quarter: 2005Q2

REPORT INFORMATION
  Report Type: 
  Country: None (occurrence: None)
  Receive Date: 20050504
  Receipt Date: 20050422
  Transmission Date: 20051028
  Serious: Yes (Other)
  Sender: FDA-Public Use
  Company Number: CA-2005-005688

PATIENT
  Age: 45 Year
  Sex: Female

DRUGS (3)
  1. BETASERON [Suspect]
     Indication: MULTIPLE SCLEROSIS
     Dosage: EVERY 2D, SUBCUTANEOUS
     Route: 058
     Dates: start: 20030701
  2. SYMBICORT TURBUHALER ^DRACO^ (ORMOTEROL FUMARATE) [Concomitant]
  3. VOLTAREN-SLOW RELEASE ^CIVA-GEIGY^ (DICLOFENAC SODIUM) [Concomitant]

REACTIONS (2)
  - CARPAL TUNNEL SYNDROME [None]
  - RAYNAUD'S PHENOMENON [None]
